FAERS Safety Report 7009385-3 (Version None)
Quarter: 2010Q3

REPORT INFORMATION
  Report Type: 
  Country: None (occurrence: None)
  Receive Date: 20100923
  Receipt Date: 20100915
  Transmission Date: 20110219
  Serious: Yes (Hospitalization)
  Sender: FDA-Public Use
  Company Number: ZA-ELI_LILLY_AND_COMPANY-ZA201009003789

PATIENT
  Sex: Female

DRUGS (1)
  1. INSULIN, HUMAN [Suspect]
     Dosage: 8 U, UNKNOWN
     Route: 058

REACTIONS (4)
  - DRUG DISPENSING ERROR [None]
  - EYE DISORDER [None]
  - HYPOGLYCAEMIA [None]
  - WRONG DRUG ADMINISTERED [None]
